FAERS Safety Report 8876192 (Version 1)
Quarter: 2012Q4

REPORT INFORMATION
  Report Type: 
  Country: CA (occurrence: CA)
  Receive Date: 20121023
  Receipt Date: 20121023
  Transmission Date: 20130627
  Serious: Yes (Death)
  Sender: FDA-Public Use
  Company Number: CA-WATSON-2012-18154

PATIENT
  Age: 11 Day

DRUGS (1)
  1. ACYCLOVIR (UNKNOWN) [Suspect]
     Indication: HERPES SIMPLEX
     Dosage: UNK
     Route: 042

REACTIONS (1)
  - Multi-organ failure [Fatal]
